FAERS Safety Report 7625237-X (Version None)
Quarter: 2011Q3

REPORT INFORMATION
  Report Type: 
  Country: None (occurrence: None)
  Receive Date: 20110713
  Receipt Date: 20110628
  Transmission Date: 20111222
  Serious: Yes (Hospitalization, Other)
  Sender: FDA-Public Use
  Company Number: 2011MA008165

PATIENT
  Age: 1 Decade
  Sex: Male
  Weight: 4.3 kg

DRUGS (1)
  1. VENLAFAXINE HYDROCHLORIDE [Suspect]
     Indication: MATERNAL EXPOSURE DURING PREGNANCY
     Dosage: 75 MG, QD

REACTIONS (11)
  - AGITATION NEONATAL [None]
  - EPILEPSY [None]
  - POSTURING [None]
  - HYPERHIDROSIS [None]
  - CONVULSION NEONATAL [None]
  - RESTLESSNESS [None]
  - BLOOD VISCOSITY INCREASED [None]
  - MATERNAL DRUGS AFFECTING FOETUS [None]
  - FEEDING DISORDER NEONATAL [None]
  - NEONATAL TACHYPNOEA [None]
  - DRUG WITHDRAWAL SYNDROME NEONATAL [None]
